FAERS Safety Report 8594783-7 (Version None)
Quarter: 2012Q3

REPORT INFORMATION
  Report Type: 
  Country: None (occurrence: None)
  Receive Date: 20120801
  Receipt Date: 20120720
  Transmission Date: 20120928
  Serious: Yes (Other)
  Sender: FDA-Public Use
  Company Number: DK-008994

PATIENT
  Age: 53 Year
  Sex: Male

DRUGS (2)
  1. SPIROCORT [Concomitant]
  2. FIRMAGON [Suspect]
     Indication: PROSTATE CANCER METASTATIC
     Dosage: (80 MG 1X/MONTH SUBCUTANEOUS)
     Route: 058

REACTIONS (8)
  - INJECTION SITE ERYTHEMA [None]
  - MUSCULOSKELETAL DISCOMFORT [None]
  - MALAISE [None]
  - MYALGIA [None]
  - INJECTION SITE PAIN [None]
  - MUSCULOSKELETAL PAIN [None]
  - INFLUENZA LIKE ILLNESS [None]
  - INJECTION SITE REACTION [None]
